FAERS Safety Report 21028429 (Version 1)
Quarter: 2022Q2

REPORT INFORMATION
  Report Type: Report from Study
  Country: CA (occurrence: CA)
  Receive Date: 20220630
  Receipt Date: 20220630
  Transmission Date: 20220721
  Serious: Yes (Hospitalization, Other)
  Sender: FDA-Public Use
  Company Number: CA-ABBVIE-22K-028-4451220-00

PATIENT
  Age: 87 Year
  Sex: Male

DRUGS (1)
  1. RINVOQ [Suspect]
     Active Substance: UPADACITINIB
     Indication: Rheumatoid arthritis
     Route: 048
     Dates: start: 20210216

REACTIONS (12)
  - Loss of consciousness [Unknown]
  - Illness [Recovered/Resolved]
  - Cardiac arrest [Unknown]
  - Vomiting [Unknown]
  - Skin laceration [Unknown]
  - Face injury [Unknown]
  - Heart valve replacement [Unknown]
  - Tremor [Unknown]
  - Illness [Unknown]
  - Asthenia [Unknown]
  - Condition aggravated [Unknown]
  - Nausea [Unknown]

NARRATIVE: CASE EVENT DATE: 20210801
